FAERS Safety Report 10638205 (Version 3)
Quarter: 2014Q4

REPORT INFORMATION
  Report Type: Report from Study
  Country: JP (occurrence: JP)
  Receive Date: 20141208
  Receipt Date: 20141216
  Transmission Date: 20150529
  Serious: Yes (Other)
  Sender: FDA-Public Use
  Company Number: JP-ABBVIE-14P-087-1311149-00

PATIENT
  Age: 46 Year
  Sex: Female
  Weight: 45 kg

DRUGS (2)
  1. LEUPRORELIN [Suspect]
     Active Substance: LEUPROLIDE ACETATE
     Indication: BREAST CANCER FEMALE
     Route: 058
     Dates: start: 20130131
  2. TASUOMIN [Concomitant]
     Active Substance: TAMOXIFEN CITRATE
     Indication: PRODUCT USED FOR UNKNOWN INDICATION

REACTIONS (1)
  - Sudden hearing loss [Recovered/Resolved]

NARRATIVE: CASE EVENT DATE: 20130208
